FAERS Safety Report 25723255 (Version 2)
Quarter: 2025Q3

REPORT INFORMATION
  Report Type: Spontaneous
  Country: US (occurrence: US)
  Receive Date: 20250825
  Receipt Date: 20250830
  Transmission Date: 20251020
  Serious: No
  Sender: ELI LILLY AND COMPANY
  Company Number: US-ELI_LILLY_AND_COMPANY-US202508021448

PATIENT
  Age: 32 Year
  Sex: Female

DRUGS (5)
  1. ZEPBOUND [Suspect]
     Active Substance: TIRZEPATIDE
     Indication: Weight control
     Route: 058
     Dates: start: 20250401
  2. ZEPBOUND [Suspect]
     Active Substance: TIRZEPATIDE
     Indication: Weight control
     Route: 058
  3. ZEPBOUND [Suspect]
     Active Substance: TIRZEPATIDE
     Indication: Weight control
     Route: 058
  4. ZEPBOUND [Suspect]
     Active Substance: TIRZEPATIDE
     Indication: Weight control
     Route: 058
  5. ZEPBOUND [Suspect]
     Active Substance: TIRZEPATIDE
     Indication: Weight control
     Route: 058

REACTIONS (3)
  - Incorrect dose administered [Unknown]
  - Dyspepsia [Unknown]
  - Eructation [Unknown]

NARRATIVE: CASE EVENT DATE: 20250820
